FAERS Safety Report 5119532-6 (Version None)
Quarter: 2006Q4

REPORT INFORMATION
  Report Type: 
  Country: None (occurrence: None)
  Receive Date: 20061003
  Receipt Date: 20060920
  Transmission Date: 20070319
  Serious: Yes (Other)
  Sender: FDA-Public Use
  Company Number: PHNU2006DE03192

PATIENT
  Age: 15 Year
  Sex: Female

DRUGS (1)
  1. RITALIN [Suspect]
     Dosage: UNKNOWN
     Route: 048
     Dates: end: 20050101

REACTIONS (1)
  - MYOCARDITIS [None]
